FAERS Safety Report 7090498-5 (Version None)
Quarter: 2010Q4

REPORT INFORMATION
  Report Type: 
  Country: None (occurrence: None)
  Receive Date: 20101109
  Receipt Date: 20101028
  Transmission Date: 20110411
  Serious: Yes (Other)
  Sender: FDA-Public Use
  Company Number: US-BAYER-201039523NA

PATIENT
  Age: 24 Year
  Sex: Female

DRUGS (2)
  1. YAZ [Suspect]
     Indication: ORAL CONTRACEPTION
     Route: 048
     Dates: start: 20070401, end: 20070801
  2. YASMIN [Suspect]
     Indication: ORAL CONTRACEPTION
     Route: 048
     Dates: start: 20070401, end: 20070801

REACTIONS (1)
  - PULMONARY EMBOLISM [None]
